FAERS Safety Report 24360179 (Version 1)
Quarter: 2024Q3

REPORT INFORMATION
  Report Type: Spontaneous
  Country: DE (occurrence: DE)
  Receive Date: 20240925
  Receipt Date: 20240925
  Transmission Date: 20241016
  Serious: Yes (Other)
  Sender: AUROBINDO
  Company Number: DE-AMGEN-DEUSP2023166265

PATIENT
  Age: 51 Year
  Sex: Male

DRUGS (1)
  1. CINACALCET [Suspect]
     Active Substance: CINACALCET
     Indication: Parathyroid tumour
     Dosage: UNK
     Route: 065

REACTIONS (4)
  - Renal impairment [Unknown]
  - Parathyroid tumour malignant [Recovering/Resolving]
  - Hypercalcaemia [Unknown]
  - Hypocalcaemia [Unknown]
